FAERS Safety Report 4979997-7 (Version None)
Quarter: 2006Q2

REPORT INFORMATION
  Report Type: 
  Country: None (occurrence: None)
  Receive Date: 20060421
  Receipt Date: 20050309
  Transmission Date: 20061013
  Serious: Yes (Hospitalization, Disabling)
  Sender: FDA-Public Use
  Company Number: US-MERCK-0503USA01669

PATIENT
  Sex: Female
  Weight: 73 kg

DRUGS (3)
  1. VIOXX [Suspect]
     Indication: ARTHRITIS
     Route: 048
     Dates: start: 20040430
  2. VIOXX [Suspect]
     Indication: PLEURISY
     Route: 048
     Dates: start: 20040430
  3. TYLENOL (CAPLET) [Concomitant]
     Route: 048

REACTIONS (3)
  - CARDIOVASCULAR DISORDER [None]
  - PRESCRIBED OVERDOSE [None]
  - PULMONARY EMBOLISM [None]
